FAERS Safety Report 22172684 (Version 1)
Quarter: 2023Q2

REPORT INFORMATION
  Report Type: Spontaneous
  Country: US (occurrence: None)
  Receive Date: 20230403
  Receipt Date: 20230403
  Transmission Date: 20230722
  Serious: Yes (Other)
  Sender: FDA-Public Use
  Company Number: None

PATIENT
  Age: 8 Month
  Sex: Female
  Weight: 6.75 kg

DRUGS (2)
  1. CEFDINIR [Suspect]
     Active Substance: CEFDINIR
     Indication: Infection prophylaxis
     Dates: start: 20230329, end: 20230401
  2. Vitamin D drops [Concomitant]

REACTIONS (4)
  - Drug dispensed to wrong patient [None]
  - Product dispensing error [None]
  - Circumstance or information capable of leading to medication error [None]
  - Wrong dose [None]

NARRATIVE: CASE EVENT DATE: 20230329
